FAERS Safety Report 4452889-8 (Version None)
Quarter: 2004Q3

REPORT INFORMATION
  Report Type: 
  Country: None (occurrence: None)
  Receive Date: 20040916
  Receipt Date: 20040902
  Transmission Date: 20050211
  Serious: Yes (Other)
  Sender: FDA-Public Use
  Company Number: 2004062325

PATIENT
  Age: 54 Year
  Sex: Male
  Weight: 104.7809 kg

DRUGS (2)
  1. ZYRTEC-D 12 HOUR [Suspect]
     Indication: HYPERSENSITIVITY
     Dosage: ORAL
     Route: 048
     Dates: start: 20020101
  2. ASPIRIN [Suspect]
     Indication: PROPHYLAXIS
     Dosage: 81 MG (81 MG, 1 IN 1 D), ORAL
     Route: 048

REACTIONS (2)
  - CONTUSION [None]
  - THROMBOCYTOPENIA [None]
